FAERS Safety Report 19047282 (Version 2)
Quarter: 2021Q2

REPORT INFORMATION
  Report Type: Spontaneous
  Country: CZ (occurrence: CZ)
  Receive Date: 20210323
  Receipt Date: 20210405
  Transmission Date: 20210717
  Serious: Yes (Other)
  Sender: FDA-Public Use
  Company Number: CZ-BAUSCH-BL-2021-008721

PATIENT
  Sex: Female

DRUGS (9)
  1. ADVAGRAF [Concomitant]
     Active Substance: TACROLIMUS
     Indication: IMMUNOSUPPRESSION
  2. MICARDIS [Concomitant]
     Active Substance: TELMISARTAN
     Indication: HYPERTENSION
  3. PREDNISON [Concomitant]
     Active Substance: PREDNISONE
     Indication: IMMUNOSUPPRESSION
  4. NORMIX [Suspect]
     Active Substance: RIFAXIMIN
     Indication: DIVERTICULITIS
     Dosage: 2?0?2 FOR ONE WEEK IN EVERY MONTH
     Route: 048
     Dates: end: 20210218
  5. URIFOS [Concomitant]
     Active Substance: FOSFOMYCIN TROMETHAMINE
     Indication: URINARY TRACT INFECTION
     Dosage: 1 SACHET IN THE EVENING
     Route: 048
     Dates: start: 20210218
  6. HELIDES [Concomitant]
     Indication: PRODUCT USED FOR UNKNOWN INDICATION
  7. VIGANTOL [Concomitant]
     Indication: PRODUCT USED FOR UNKNOWN INDICATION
  8. RYTMONORM [Concomitant]
     Active Substance: PROPAFENONE
     Indication: ATRIAL FIBRILLATION
  9. INDAPAMIDE. [Concomitant]
     Active Substance: INDAPAMIDE
     Indication: HYPERTENSION

REACTIONS (1)
  - Uterine haemorrhage [Recovering/Resolving]

NARRATIVE: CASE EVENT DATE: 20210119
